FAERS Safety Report 14643529 (Version 3)
Quarter: 2018Q4

REPORT INFORMATION
  Report Type: Report from Study
  Country: FR (occurrence: FR)
  Receive Date: 20180315
  Receipt Date: 20181001
  Transmission Date: 20190204
  Serious: Yes (Death, Hospitalization, Other)
  Sender: FDA-Public Use
  Company Number: FR-PFIZER INC-2018104433

PATIENT
  Age: 62 Year
  Sex: Male
  Weight: 65 kg

DRUGS (9)
  1. GEMCITABINE HYDROCHLORIDE. [Suspect]
     Active Substance: GEMCITABINE HYDROCHLORIDE
     Dosage: 1500 MG, UNK
     Route: 042
     Dates: start: 20170629, end: 20170707
  2. ICE /06761101/ [Concomitant]
     Indication: PERIPHERAL T-CELL LYMPHOMA UNSPECIFIED
     Dosage: UNK
  3. NAVELBINE [Suspect]
     Active Substance: VINORELBINE TARTRATE
     Indication: PERIPHERAL T-CELL LYMPHOMA UNSPECIFIED
     Dosage: 45 MG, UNK
     Route: 042
     Dates: start: 20170629, end: 20170707
  4. DEXAMETHASONE. [Concomitant]
     Active Substance: DEXAMETHASONE
     Dosage: UNK
     Dates: start: 20170523, end: 201705
  5. CYTARABINE. [Concomitant]
     Active Substance: CYTARABINE
     Dosage: UNK
     Dates: start: 20170523, end: 201705
  6. BRENTUXIMAB VEDOTIN [Suspect]
     Active Substance: BRENTUXIMAB VEDOTIN
     Dosage: 73 MG, UNK
     Route: 050
     Dates: start: 20170331
  7. CISPLATIN. [Concomitant]
     Active Substance: CISPLATIN
     Dosage: UNK
     Dates: start: 20170523, end: 201705
  8. BRENTUXIMAB VEDOTIN [Suspect]
     Active Substance: BRENTUXIMAB VEDOTIN
     Indication: PERIPHERAL T-CELL LYMPHOMA UNSPECIFIED
     Dosage: 80 MG, UNK
     Route: 050
     Dates: start: 20170214
  9. BRENTUXIMAB VEDOTIN [Suspect]
     Active Substance: BRENTUXIMAB VEDOTIN
     Dosage: 75 MG, UNK
     Route: 050
     Dates: start: 20170307

REACTIONS (7)
  - Weight decreased [Unknown]
  - Product use in unapproved indication [Unknown]
  - Hypotension [Fatal]
  - Aplasia [Fatal]
  - Altered state of consciousness [Fatal]
  - Sepsis [Fatal]
  - General physical health deterioration [Fatal]

NARRATIVE: CASE EVENT DATE: 2017
